FAERS Safety Report 9675219 (Version 2)
Quarter: 2013Q4

REPORT INFORMATION
  Report Type: Spontaneous
  Country: US (occurrence: US)
  Receive Date: 20131107
  Receipt Date: 20131230
  Transmission Date: 20140711
  Serious: No
  Sender: FDA-Public Use
  Company Number: US-PFIZER INC-2013315795

PATIENT
  Age: 53 Year
  Sex: Male
  Weight: 96.6 kg

DRUGS (3)
  1. CELEBREX [Suspect]
     Indication: PAIN
     Dosage: 200 MG, 1X/DAY
     Route: 048
     Dates: end: 2013
  2. NEXIUM [Concomitant]
     Dosage: UNK
  3. ATORVASTATIN [Concomitant]
     Dosage: UNK

REACTIONS (9)
  - Haemoglobin decreased [Unknown]
  - Red blood cell sedimentation rate increased [Unknown]
  - White blood cell count increased [Unknown]
  - Malaise [Unknown]
  - Myalgia [Unknown]
  - Asthenia [Unknown]
  - Pruritus [Unknown]
  - Influenza [Unknown]
  - Swelling [Unknown]
